FAERS Safety Report 11837349 (Version 2)
Quarter: 2016Q1

REPORT INFORMATION
  Report Type: Spontaneous
  Country: US (occurrence: US)
  Receive Date: 20151215
  Receipt Date: 20160315
  Transmission Date: 20160525
  Serious: Yes (Other)
  Sender: FDA-Public Use
  Company Number: US-MALLINCKRODT-T201505505

PATIENT
  Sex: Female
  Weight: 132 kg

DRUGS (9)
  1. HYDROCODONE [Concomitant]
     Active Substance: HYDROCODONE
     Dosage: IN PM
  2. DEXTROAMPHETAMINE SULFATE. [Suspect]
     Active Substance: DEXTROAMPHETAMINE SULFATE
     Indication: NARCOLEPSY
     Dosage: 10 MG (20-30 MG ONCE A DAY IN THE MORNING)
     Route: 048
  3. WELLBUTRIN [Suspect]
     Active Substance: BUPROPION HYDROCHLORIDE
     Indication: SMOKING CESSATION THERAPY
     Dosage: 150 MG
     Route: 065
  4. METOPROLOL. [Concomitant]
     Active Substance: METOPROLOL
     Dosage: UNK
  5. SERTRALINE [Concomitant]
     Active Substance: SERTRALINE HYDROCHLORIDE
     Dosage: UNK
  6. LISINOPRIL. [Concomitant]
     Active Substance: LISINOPRIL
     Dosage: UNK
  7. OXYBUTYN [Concomitant]
     Dosage: UNK
  8. 5 HOUR ENERGY [Concomitant]
  9. HYDROCHLOROTHIAZIDE. [Concomitant]
     Active Substance: HYDROCHLOROTHIAZIDE

REACTIONS (11)
  - Presyncope [Recovering/Resolving]
  - Breast cancer [Recovered/Resolved]
  - Urinary incontinence [Not Recovered/Not Resolved]
  - Drug interaction [Unknown]
  - Stress [Not Recovered/Not Resolved]
  - Insomnia [Not Recovered/Not Resolved]
  - Headache [Not Recovered/Not Resolved]
  - Dehydration [Unknown]
  - Dizziness [Not Recovered/Not Resolved]
  - Vision blurred [Not Recovered/Not Resolved]
  - Hypertension [Not Recovered/Not Resolved]

NARRATIVE: CASE EVENT DATE: 2010
